FAERS Safety Report 4835380-6 (Version None)
Quarter: 2005Q4

REPORT INFORMATION
  Report Type: 
  Country: None (occurrence: None)
  Receive Date: 20051118
  Receipt Date: 20051107
  Transmission Date: 20060501
  Serious: Yes (Other)
  Sender: FDA-Public Use
  Company Number: HQWYE103919OCT05

PATIENT
  Age: 64 Year
  Sex: Male
  Weight: 108.6 kg

DRUGS (25)
  1. RAPAMUNE [Suspect]
     Indication: PROPHYLAXIS AGAINST TRANSPLANT REJECTION
     Dosage: 6 MG 1X PER 1 DAY; ORAL
     Route: 048
     Dates: start: 20050121, end: 20051001
  2. RAPAMUNE [Suspect]
     Dosage: 7 MG 1X PER 1 DAY; ORAL
     Route: 048
     Dates: start: 20051001
  3. ZENAPAX [Concomitant]
  4. CELLCEPT [Concomitant]
  5. PREDNISONE [Concomitant]
  6. PREDNISONE [Concomitant]
  7. PROCRIT [Concomitant]
  8. PROCRIT [Concomitant]
  9. BACTRIM [Concomitant]
  10. ASPIRIN [Concomitant]
  11. ACTOS [Concomitant]
  12. LEXAPRO [Concomitant]
  13. ZOCOR [Concomitant]
  14. FERROUS SULFATE TAB [Concomitant]
  15. FERROUS SULFATE TAB [Concomitant]
  16. SYNTHROID [Concomitant]
  17. MULTIVITAMINS, PLAIN [Concomitant]
  18. PROTONIX [Concomitant]
  19. METOPROLOL [Concomitant]
  20. ISOSORBIDE DINITRATE [Concomitant]
  21. BUMEX [Concomitant]
  22. LANTUS [Concomitant]
  23. LANTUS [Concomitant]
  24. HYDRALAZINE [Concomitant]
  25. NOVOLOG [Concomitant]

REACTIONS (2)
  - DRUG INEFFECTIVE [None]
  - KIDNEY TRANSPLANT REJECTION [None]
